FAERS Safety Report 13828636 (Version 5)
Quarter: 2017Q4

REPORT INFORMATION
  Report Type: Report from Study
  Country: ES (occurrence: ES)
  Receive Date: 20170803
  Receipt Date: 20171220
  Transmission Date: 20180320
  Serious: Yes (Death, Hospitalization)
  Sender: FDA-Public Use
  Company Number: ES-ROCHE-1960458

PATIENT
  Age: 65 Year
  Sex: Female
  Weight: 77.6 kg

DRUGS (18)
  1. METAMIZOL [Concomitant]
     Active Substance: METAMIZOLE SODIUM
     Indication: URINARY TRACT INFECTION
     Route: 065
     Dates: start: 20170718, end: 20170720
  2. MORPHINE [Concomitant]
     Active Substance: MORPHINE
     Route: 058
     Dates: start: 20170729, end: 20170731
  3. METAMIZOL [Concomitant]
     Active Substance: METAMIZOLE SODIUM
  4. HALOPERIDOL. [Concomitant]
     Active Substance: HALOPERIDOL
     Route: 042
     Dates: start: 20170729, end: 20170731
  5. MORPHINE [Concomitant]
     Active Substance: MORPHINE
     Route: 048
     Dates: start: 20170726, end: 20170727
  6. RO 6958688 (T-CELL BISPECIFIC MONOCLONAL ANTIBODY) [Suspect]
     Active Substance: INVESTIGATIONAL PRODUCT
     Indication: NEOPLASM MALIGNANT
     Dosage: THE MOST RECENT DOSE PRIOR TO EVENTS ONSET: 04/JUL/2017 ?DISCONTINUED:  25/JUL/2017
     Route: 042
     Dates: start: 20170704
  7. HALOPERIDOL. [Concomitant]
     Active Substance: HALOPERIDOL
     Route: 058
     Dates: start: 20170728, end: 20170731
  8. MORPHINE [Concomitant]
     Active Substance: MORPHINE
     Route: 042
     Dates: start: 20170729, end: 20170731
  9. METAMIZOL [Concomitant]
     Active Substance: METAMIZOLE SODIUM
     Route: 065
     Dates: start: 20170723, end: 20170726
  10. PREGABALINE [Concomitant]
     Active Substance: PREGABALIN
  11. MIDAZOLAM [Concomitant]
     Active Substance: MIDAZOLAM HYDROCHLORIDE
     Route: 030
     Dates: start: 20170729, end: 20170731
  12. MIDAZOLAM [Concomitant]
     Active Substance: MIDAZOLAM HYDROCHLORIDE
     Route: 042
     Dates: start: 20170729, end: 20170731
  13. MORPHINE [Concomitant]
     Active Substance: MORPHINE
     Route: 058
     Dates: start: 20170726, end: 20170728
  14. NALOXONE [Concomitant]
     Active Substance: NALOXONE
     Route: 065
     Dates: start: 20170727, end: 20170728
  15. OBINUTUZUMAB. [Suspect]
     Active Substance: OBINUTUZUMAB
     Indication: NEOPLASM MALIGNANT
     Dosage: 2000 MG ON DAY -13 OR 1000 MG ON DAYS -13 (21 JUN 2017) AND DAY -12 (22 JUN 2017) PRIOR TO THE TREAT
     Route: 042
     Dates: start: 20170621
  16. METOCLOPRAMIDE. [Concomitant]
     Active Substance: METOCLOPRAMIDE
  17. KREON [Concomitant]
     Active Substance: PANCRELIPASE
  18. FLUMAZENIL. [Concomitant]
     Active Substance: FLUMAZENIL
     Route: 065
     Dates: start: 20170728, end: 20170729

REACTIONS (4)
  - Sepsis [Fatal]
  - Fatigue [Not Recovered/Not Resolved]
  - Urinary tract infection [Recovered/Resolved]
  - Pyrexia [Recovered/Resolved]

NARRATIVE: CASE EVENT DATE: 20170704
